FAERS Safety Report 18844618 (Version 1)
Quarter: 2021Q1

REPORT INFORMATION
  Report Type: Spontaneous
  Country: PL (occurrence: PL)
  Receive Date: 20210203
  Receipt Date: 20210203
  Transmission Date: 20210419
  Serious: No
  Sender: FDA-Public Use
  Company Number: PL-EXELIXIS-CABO-18029458

PATIENT
  Age: 68 Year
  Sex: Female
  Weight: 44 kg

DRUGS (1)
  1. CABOMETYX [Suspect]
     Active Substance: CABOZANTINIB S-MALATE
     Indication: RENAL CELL CARCINOMA
     Dosage: 40 MG
     Route: 048

REACTIONS (16)
  - Paraesthesia [Unknown]
  - Insomnia [Unknown]
  - Oral disorder [Unknown]
  - Nasal congestion [Unknown]
  - Palmar-plantar erythrodysaesthesia syndrome [Unknown]
  - Eructation [Unknown]
  - Alopecia [Unknown]
  - Pain in extremity [Unknown]
  - Diarrhoea [Unknown]
  - Hypothyroidism [Unknown]
  - Lymphocyte count [Unknown]
  - Hair colour changes [Unknown]
  - Back pain [Unknown]
  - Blood pressure increased [Unknown]
  - Asthenia [Unknown]
  - Oedema [Unknown]
